FAERS Safety Report 9325136 (Version 1)
Quarter: 2013Q2

REPORT INFORMATION
  Report Type: Spontaneous
  Country: US (occurrence: US)
  Receive Date: 20130603
  Receipt Date: 20130603
  Transmission Date: 20140414
  Serious: No
  Sender: FDA-Public Use
  Company Number: US-009507513-1305USA016996

PATIENT
  Age: 78 Year
  Sex: Female

DRUGS (1)
  1. AZASITE [Suspect]
     Indication: CONJUNCTIVITIS BACTERIAL
     Dosage: ONE DROP IN EACH EYE DAILY
     Route: 047
     Dates: start: 20130522

REACTIONS (3)
  - Drug dose omission [Unknown]
  - Product quality issue [Unknown]
  - No adverse event [Unknown]
